FAERS Safety Report 25072874 (Version 1)
Quarter: 2025Q1

REPORT INFORMATION
  Report Type: Spontaneous
  Country: CN (occurrence: CN)
  Receive Date: 20250313
  Receipt Date: 20250313
  Transmission Date: 20250408
  Serious: Yes (Other)
  Sender: ARGENX BVBA
  Company Number: CN-ARGENX-2025-ARGX-CN002145

PATIENT

DRUGS (2)
  1. VYVGART [Suspect]
     Active Substance: EFGARTIGIMOD ALFA-FCAB
     Indication: Myasthenia gravis
     Dosage: 800 MG, Q2WEEKS (EVERY 14 DAYS,)
     Route: 042
     Dates: start: 202408
  2. VALSARTAN [Concomitant]
     Active Substance: VALSARTAN
     Indication: Hypertension
     Route: 065

REACTIONS (4)
  - Myasthenia gravis [Not Recovered/Not Resolved]
  - Diplopia [Unknown]
  - Muscular weakness [Unknown]
  - Off label use [Unknown]

NARRATIVE: CASE EVENT DATE: 20250214
